FAERS Safety Report 4529587-5 (Version None)
Quarter: 2004Q4

REPORT INFORMATION
  Report Type: 
  Country: None (occurrence: None)
  Receive Date: 20041214
  Receipt Date: 20041201
  Transmission Date: 20050328
  Serious: Yes (Other)
  Sender: FDA-Public Use
  Company Number: HQWYE720901DEC04

PATIENT
  Age: 56 Year
  Sex: Female
  Weight: 72.7 kg

DRUGS (9)
  1. RAPAMUNE [Suspect]
     Indication: PROPHYLAXIS AGAINST TRANSPLANT REJECTION
     Dosage: 4 MG 1X PER 1 DAY, ORAL; 5 MG 1X PER 1 DAY, ORAL
     Route: 048
     Dates: start: 20040924, end: 20041024
  2. RAPAMUNE [Suspect]
     Indication: PROPHYLAXIS AGAINST TRANSPLANT REJECTION
     Dosage: 4 MG 1X PER 1 DAY, ORAL; 5 MG 1X PER 1 DAY, ORAL
     Route: 048
     Dates: start: 20041025
  3. ACTIGALL [Concomitant]
  4. PREVACID [Concomitant]
  5. SYNTHROID [Concomitant]
  6. BACTRIM [Concomitant]
  7. BENADRYL [Concomitant]
  8. NORVASC [Concomitant]
  9. PREDNISONE [Concomitant]

REACTIONS (4)
  - COMPLICATIONS OF TRANSPLANTED LIVER [None]
  - DRUG LEVEL BELOW THERAPEUTIC [None]
  - LIVER TRANSPLANT REJECTION [None]
  - PRURITUS [None]
